FAERS Safety Report 17742066 (Version 5)
Quarter: 2020Q4

REPORT INFORMATION
  Report Type: Report from Study
  Country: FR (occurrence: FR)
  Receive Date: 20200504
  Receipt Date: 20201123
  Transmission Date: 20210113
  Serious: Yes (Hospitalization, Other)
  Sender: FDA-Public Use
  Company Number: NVSC2020FR098310

PATIENT
  Age: 75 Year
  Sex: Male
  Weight: 93.3 kg

DRUGS (44)
  1. ADOPORT [Suspect]
     Active Substance: TACROLIMUS
     Dosage: 9 MG
     Route: 048
     Dates: start: 20200221, end: 20200222
  2. THYMOGLOBULINE [Concomitant]
     Active Substance: LAPINE T-LYMPHOCYTE IMMUNE GLOBULIN
     Indication: PROPHYLAXIS
     Dosage: 75 MG
     Route: 065
     Dates: start: 20200220, end: 20200221
  3. HEPARIN CALCIUM [Concomitant]
     Active Substance: HEPARIN CALCIUM
     Indication: PRODUCT USED FOR UNKNOWN INDICATION
     Dosage: UNK
     Route: 065
     Dates: start: 20200224, end: 20200224
  4. LACTATED RINGERS SOLUTION [Concomitant]
     Active Substance: CALCIUM CHLORIDE\POTASSIUM CHLORIDE\SODIUM CHLORIDE\SODIUM LACTATE
     Indication: PRODUCT USED FOR UNKNOWN INDICATION
     Dosage: UNK
     Route: 065
     Dates: start: 20200224, end: 20200301
  5. PANTOPRAZOLE [Concomitant]
     Active Substance: PANTOPRAZOLE
     Indication: PRODUCT USED FOR UNKNOWN INDICATION
     Dosage: UNK
     Route: 065
     Dates: start: 20200224, end: 20200305
  6. GAVISCON [Concomitant]
     Active Substance: ALUMINUM HYDROXIDE\MAGNESIUM CARBONATE
     Indication: PRODUCT USED FOR UNKNOWN INDICATION
     Dosage: UNK
     Route: 065
     Dates: start: 20200223, end: 20200225
  7. TRIMEBUTINE [Concomitant]
     Active Substance: TRIMEBUTINE
     Indication: PRODUCT USED FOR UNKNOWN INDICATION
     Dosage: UNK
     Route: 065
     Dates: start: 20200223, end: 20200305
  8. VALGANCICLOVIR. [Concomitant]
     Active Substance: VALGANCICLOVIR
     Indication: PRODUCT USED FOR UNKNOWN INDICATION
     Dosage: UNK
     Route: 065
     Dates: start: 20200221
  9. ADOPORT [Suspect]
     Active Substance: TACROLIMUS
     Dosage: 13 MG
     Route: 048
     Dates: start: 20200325, end: 20200422
  10. ADOPORT [Suspect]
     Active Substance: TACROLIMUS
     Dosage: 12 MG
     Route: 048
     Dates: start: 20200306, end: 20200307
  11. ADOPORT [Suspect]
     Active Substance: TACROLIMUS
     Dosage: 18 MG (LAST DOSE ON 03 MAR 2020)
     Route: 048
     Dates: start: 20200301
  12. CHLORURE DE SODIUM [Concomitant]
     Active Substance: SODIUM CHLORIDE
     Indication: PRODUCT USED FOR UNKNOWN INDICATION
     Dosage: UNK
     Route: 065
     Dates: start: 20200224, end: 20200225
  13. ADOPORT [Suspect]
     Active Substance: TACROLIMUS
     Dosage: 16 MG
     Route: 048
     Dates: start: 20200227, end: 20200229
  14. ADOPORT [Suspect]
     Active Substance: TACROLIMUS
     Dosage: 10 MG
     Route: 048
     Dates: start: 20200515
  15. ADOPORT [Suspect]
     Active Substance: TACROLIMUS
     Dosage: 12.5 MG
     Route: 048
     Dates: start: 20200318, end: 20200325
  16. PHOCYTAN [Concomitant]
     Active Substance: .ALPHA.-GLUCOSE-1-PHOSPHATE
     Indication: PRODUCT USED FOR UNKNOWN INDICATION
     Dosage: UNK
     Route: 065
     Dates: start: 20200227, end: 20200227
  17. PHLOROGLUCINOL [Concomitant]
     Active Substance: PHLOROGLUCINOL
     Indication: PRODUCT USED FOR UNKNOWN INDICATION
     Dosage: UNK
     Route: 065
     Dates: start: 20200222, end: 20200225
  18. ADOPORT [Suspect]
     Active Substance: TACROLIMUS
     Indication: RENAL TRANSPLANT
     Dosage: 9 MG
     Route: 048
     Dates: start: 20200221, end: 20200221
  19. ADOPORT [Suspect]
     Active Substance: TACROLIMUS
     Dosage: 12 MG
     Route: 048
     Dates: start: 20200224, end: 20200225
  20. ADOPORT [Suspect]
     Active Substance: TACROLIMUS
     Dosage: 14 MG
     Route: 048
     Dates: start: 20200225, end: 20200226
  21. ADOPORT [Suspect]
     Active Substance: TACROLIMUS
     Dosage: 11 MG
     Route: 048
     Dates: start: 20200308, end: 20200309
  22. TRIMETHYLPHLOROGLUCINOL [Concomitant]
     Active Substance: 1,3,5-TRIMETHOXYBENZENE
     Indication: PRODUCT USED FOR UNKNOWN INDICATION
     Dosage: UNK
     Route: 065
     Dates: start: 20200225, end: 20200228
  23. PARACETAMOL [Concomitant]
     Active Substance: ACETAMINOPHEN
     Indication: PRODUCT USED FOR UNKNOWN INDICATION
     Dosage: UNK
     Route: 065
     Dates: start: 20200220
  24. ADOPORT [Suspect]
     Active Substance: TACROLIMUS
     Dosage: 11 MG
     Route: 048
     Dates: start: 20200223, end: 20200224
  25. ADOPORT [Suspect]
     Active Substance: TACROLIMUS
     Dosage: 14 MG
     Route: 048
     Dates: start: 20200305, end: 20200306
  26. ADOPORT [Suspect]
     Active Substance: TACROLIMUS
     Dosage: 16 MG
     Route: 048
     Dates: start: 20200304, end: 20200305
  27. MPA [Concomitant]
     Indication: PROPHYLAXIS
     Dosage: 720 MG
     Route: 065
     Dates: start: 20200220
  28. ZOPICLONE [Concomitant]
     Active Substance: ZOPICLONE
     Indication: PRODUCT USED FOR UNKNOWN INDICATION
     Dosage: UNK
     Route: 065
     Dates: start: 20200227, end: 20200227
  29. NEFOPAM [Concomitant]
     Active Substance: NEFOPAM
     Indication: PRODUCT USED FOR UNKNOWN INDICATION
     Dosage: UNK
     Route: 065
     Dates: start: 20200222, end: 20200227
  30. FOLINATE DE CALCIUM [Concomitant]
     Active Substance: LEUCOVORIN CALCIUM
     Indication: PRODUCT USED FOR UNKNOWN INDICATION
     Dosage: UNK
     Route: 065
     Dates: start: 20200221, end: 20200226
  31. TAZOCILLINE [Concomitant]
     Active Substance: PIPERACILLIN SODIUM\TAZOBACTAM SODIUM
     Indication: PRODUCT USED FOR UNKNOWN INDICATION
     Route: 065
  32. ADOPORT [Suspect]
     Active Substance: TACROLIMUS
     Dosage: 4.5 MG
     Route: 048
     Dates: start: 20200222, end: 20200223
  33. ADOPORT [Suspect]
     Active Substance: TACROLIMUS
     Dosage: 12 MG
     Route: 048
     Dates: start: 20200422, end: 20200515
  34. ADOPORT [Suspect]
     Active Substance: TACROLIMUS
     Dosage: 11.5 MG
     Route: 048
     Dates: start: 20200309, end: 20200310
  35. ADOPORT [Suspect]
     Active Substance: TACROLIMUS
     Dosage: 12 MG
     Route: 048
     Dates: start: 20200307, end: 20200308
  36. SULFAMETHOXAZOLE AND TRIMETHOPRIM [Concomitant]
     Active Substance: SULFAMETHOXAZOLE\TRIMETHOPRIM
     Indication: PRODUCT USED FOR UNKNOWN INDICATION
     Dosage: UNK
     Route: 065
     Dates: start: 20200223
  37. LINEZOLIDE [Concomitant]
     Active Substance: LINEZOLID
     Indication: PRODUCT USED FOR UNKNOWN INDICATION
     Dosage: UNK
     Route: 065
     Dates: start: 20200229
  38. OMEPRAZOLE. [Concomitant]
     Active Substance: OMEPRAZOLE
     Indication: PRODUCT USED FOR UNKNOWN INDICATION
     Dosage: UNK
     Route: 065
     Dates: start: 20200311
  39. DARBEPOETINE ALFA [Concomitant]
     Active Substance: DARBEPOETIN ALFA
     Indication: PRODUCT USED FOR UNKNOWN INDICATION
     Dosage: UNK
     Route: 065
     Dates: start: 20200221
  40. ADOPORT [Suspect]
     Active Substance: TACROLIMUS
     Dosage: 15 MG
     Route: 065
     Dates: start: 20200226, end: 20200227
  41. ADOPORT [Suspect]
     Active Substance: TACROLIMUS
     Dosage: 13 MG
     Route: 048
     Dates: start: 20200227
  42. ADOPORT [Suspect]
     Active Substance: TACROLIMUS
     Dosage: 12 MG
     Route: 048
     Dates: start: 20200310, end: 20200318
  43. SOLU-MEDROL [Concomitant]
     Active Substance: METHYLPREDNISOLONE SODIUM SUCCINATE
     Indication: PROPHYLAXIS
     Dosage: 250 MG
     Route: 065
     Dates: start: 20200220, end: 20200221
  44. AMLODIPINE [Concomitant]
     Active Substance: AMLODIPINE BESYLATE
     Indication: PRODUCT USED FOR UNKNOWN INDICATION
     Dosage: UNK
     Route: 065
     Dates: start: 20200227

REACTIONS (12)
  - Abdominal wall abscess [Recovered/Resolved]
  - Acute kidney injury [Recovered/Resolved]
  - Hyperkalaemia [Recovered/Resolved]
  - Anaemia [Recovered/Resolved]
  - Diarrhoea [Recovering/Resolving]
  - Thrombocytopenia [Recovered/Resolved]
  - Hypertension [Recovered/Resolved]
  - Acute kidney injury [Recovered/Resolved]
  - Hypophosphataemia [Recovered/Resolved]
  - Retroperitoneal haematoma [Recovered/Resolved]
  - Subileus [Recovered/Resolved]
  - Hypertensive heart disease [Not Recovered/Not Resolved]

NARRATIVE: CASE EVENT DATE: 20200222
